FAERS Safety Report 4789900-0 (Version None)
Quarter: 2005Q4

REPORT INFORMATION
  Report Type: 
  Country: None (occurrence: None)
  Receive Date: 20051006
  Receipt Date: 20050629
  Transmission Date: 20060501
  Serious: Yes (Hospitalization)
  Sender: FDA-Public Use
  Company Number: US-MERCK-0506USA04323

PATIENT
  Age: 68 Year
  Sex: Female
  Weight: 95 kg

DRUGS (10)
  1. VIOXX [Suspect]
     Indication: ARTHRITIS
     Route: 048
     Dates: start: 20020821, end: 20030810
  2. VIOXX [Suspect]
     Indication: PAIN
     Route: 048
     Dates: start: 20020821, end: 20030810
  3. RHINOCORT [Concomitant]
     Indication: HYPERSENSITIVITY
     Route: 065
  4. RHINOCORT [Concomitant]
     Indication: ASTHMA
     Route: 065
  5. TYLENOL (CAPLET) [Concomitant]
     Route: 065
  6. [THERAPY UNSPECIFIED] [Concomitant]
     Route: 065
  7. VITAMINS (UNSPECIFIED) [Concomitant]
     Route: 065
  8. CLARITIN [Concomitant]
     Indication: ASTHMA
     Route: 065
  9. PROVENTIL [Concomitant]
     Route: 065
  10. OPTIVAR OPHTHALMIC SOLUTION [Concomitant]
     Route: 065

REACTIONS (11)
  - ACUTE CORONARY SYNDROME [None]
  - ACUTE MYOCARDIAL INFARCTION [None]
  - CORONARY ARTERY DISEASE [None]
  - EMPHYSEMA [None]
  - GLAUCOMA [None]
  - HEADACHE [None]
  - HYPERCHOLESTEROLAEMIA [None]
  - HYPERGLYCAEMIA [None]
  - PAIN IN EXTREMITY [None]
  - REFUSAL OF TREATMENT BY PATIENT [None]
  - SINUS BRADYCARDIA [None]
